FAERS Safety Report 8952728 (Version 4)
Quarter: 2015Q1

REPORT INFORMATION
  Report Type: Report from Study
  Country: FR (occurrence: FR)
  Receive Date: 20121205
  Receipt Date: 20150116
  Transmission Date: 20150721
  Serious: Yes (Hospitalization, Other)
  Sender: FDA-Public Use
  Company Number: FR-ROCHE-1162679

PATIENT
  Age: 57 Year
  Sex: Female

DRUGS (7)
  1. CORTANCYL [Concomitant]
     Active Substance: PREDNISONE
     Dosage: 7 MG/D
     Route: 065
  2. RITUXIMAB [Suspect]
     Active Substance: RITUXIMAB
     Route: 042
     Dates: start: 20131217
  3. RITUXIMAB [Suspect]
     Active Substance: RITUXIMAB
     Indication: RHEUMATOID ARTHRITIS
     Route: 041
     Dates: start: 20060202
  4. RITUXIMAB [Suspect]
     Active Substance: RITUXIMAB
     Route: 042
     Dates: start: 20140116
  5. METHOTREXATE [Concomitant]
     Active Substance: METHOTREXATE
  6. CORTANCYL [Concomitant]
     Active Substance: PREDNISONE
     Dosage: 5 MG/D
     Route: 065
     Dates: start: 20131217
  7. CORTANCYL [Concomitant]
     Active Substance: PREDNISONE
     Dosage: 10 MG/D
     Route: 065
     Dates: start: 20140116

REACTIONS (9)
  - Bronchitis [Recovered/Resolved]
  - Cochlea implant [Unknown]
  - Pyrexia [Recovered/Resolved]
  - Pseudomyxoma peritonei [Unknown]
  - Nausea [Recovered/Resolved]
  - Rash [Recovered/Resolved]
  - Malignant peritoneal neoplasm [Not Recovered/Not Resolved]
  - Vomiting [Recovered/Resolved]
  - Escherichia urinary tract infection [Recovered/Resolved]

NARRATIVE: CASE EVENT DATE: 200610
